FAERS Safety Report 8036057-9 (Version None)
Quarter: 2012Q1

REPORT INFORMATION
  Report Type: 
  Country: None (occurrence: None)
  Receive Date: 20120111
  Receipt Date: 20120110
  Transmission Date: 20120608
  Serious: Yes (Hospitalization, Other)
  Sender: FDA-Public Use
  Company Number: BR-BAYER-2012-003119

PATIENT
  Sex: Male

DRUGS (7)
  1. GALENIC FORMULA [Concomitant]
     Indication: GASTROINTESTINAL DISORDER
     Dosage: 4 DF, QD
     Route: 048
  2. NEXAVAR [Suspect]
     Indication: HEPATIC NEOPLASM MALIGNANT
     Dosage: 200 MG, QD
     Route: 048
     Dates: start: 20090506, end: 20090508
  3. NEXAVAR [Suspect]
     Dosage: 200 MG, QD
     Dates: start: 20090516, end: 20090521
  4. LAMIVUDINE [Concomitant]
     Indication: HEPATIC NEOPLASM MALIGNANT
     Dosage: UNK
     Route: 048
     Dates: start: 20030430
  5. NEXAVAR [Suspect]
     Dosage: 400 MG, BID
     Route: 048
     Dates: start: 20110726
  6. TENOFOVIR [Concomitant]
     Indication: HEPATIC NEOPLASM MALIGNANT
     Dosage: UNK
     Route: 048
     Dates: start: 20090106
  7. NEXAVAR [Suspect]
     Dosage: 200 MG, BID
     Route: 048
     Dates: start: 20090522, end: 20110725

REACTIONS (4)
  - LIVER DISORDER [None]
  - DECREASED APPETITE [None]
  - NAUSEA [None]
  - HEPATIC NEOPLASM [None]
